FAERS Safety Report 25581939 (Version 1)
Quarter: 2025Q3

REPORT INFORMATION
  Report Type: Report from Study
  Country: EU (occurrence: EU)
  Receive Date: 20250719
  Receipt Date: 20250719
  Transmission Date: 20251020
  Serious: Yes (Other)
  Sender: AUROBINDO
  Company Number: EU-BRISTOL-MYERS SQUIBB COMPANY-2025-093647

PATIENT
  Age: 49 Year
  Sex: Male

DRUGS (7)
  1. CELECOXIB [Suspect]
     Active Substance: CELECOXIB
     Indication: Medulloblastoma
     Dosage: 800 MILLIGRAM, TWO TIMES A DAY
     Route: 048
  2. FENOFIBRATE [Suspect]
     Active Substance: FENOFIBRATE
     Indication: Medulloblastoma
     Dosage: 90 MILLIGRAM/SQ. METER, ONCE A DAY
     Route: 048
  3. THALIDOMIDE [Suspect]
     Active Substance: THALIDOMIDE
     Indication: Medulloblastoma
     Dosage: 3 MILLIGRAM/KILOGRAM, ONCE A DAY
     Route: 048
  4. ETOPOSIDE [Suspect]
     Active Substance: ETOPOSIDE
     Indication: Medulloblastoma
     Route: 065
  5. ETOPOSIDE [Suspect]
     Active Substance: ETOPOSIDE
     Route: 065
  6. CYCLOPHOSPHAMIDE [Suspect]
     Active Substance: CYCLOPHOSPHAMIDE
     Indication: Medulloblastoma
     Route: 065
  7. BEVACIZUMAB [Suspect]
     Active Substance: BEVACIZUMAB
     Indication: Medulloblastoma
     Dosage: 10 MILLIGRAM/KILOGRAM, BIWEEKLY
     Route: 042

REACTIONS (4)
  - Neutropenia [Unknown]
  - Neurotoxicity [Unknown]
  - Lymphopenia [Unknown]
  - Off label use [Unknown]
